FAERS Safety Report 14352398 (Version 5)
Quarter: 2019Q1

REPORT INFORMATION
  Report Type: Spontaneous
  Country: US (occurrence: US)
  Receive Date: 20180104
  Receipt Date: 20190108
  Transmission Date: 20190417
  Serious: Yes (Hospitalization)
  Sender: FDA-Public Use
  Company Number: US-GLAXOSMITHKLINE-US2018000648

PATIENT
  Age: 66 Year
  Sex: Female

DRUGS (8)
  1. FLOVENT DISKUS [Suspect]
     Active Substance: FLUTICASONE PROPIONATE
     Dosage: UNK
  2. FLOVENT DISKUS [Suspect]
     Active Substance: FLUTICASONE PROPIONATE
     Indication: CHRONIC OBSTRUCTIVE PULMONARY DISEASE
     Dosage: 2 PUFF(S), BID
     Route: 055
     Dates: start: 201701
  3. LORAZEPAM. [Concomitant]
     Active Substance: LORAZEPAM
  4. FLOVENT DISKUS [Suspect]
     Active Substance: FLUTICASONE PROPIONATE
     Indication: ASTHMA
     Dosage: UNK
  5. OMEPRAZOLE. [Concomitant]
     Active Substance: OMEPRAZOLE
     Indication: ASTHMA
  6. VENTOLIN HFA [Suspect]
     Active Substance: ALBUTEROL SULFATE
     Indication: ASTHMA
  7. VENTOLIN HFA [Suspect]
     Active Substance: ALBUTEROL SULFATE
     Indication: CHRONIC OBSTRUCTIVE PULMONARY DISEASE
     Dosage: UNK
     Route: 055
     Dates: start: 201610
  8. OMEPRAZOLE. [Concomitant]
     Active Substance: OMEPRAZOLE
     Indication: CHRONIC OBSTRUCTIVE PULMONARY DISEASE
     Dosage: UNK
     Route: 055
     Dates: start: 201610

REACTIONS (7)
  - Product use in unapproved indication [Unknown]
  - Dyspnoea [Not Recovered/Not Resolved]
  - Laparoscopy [Unknown]
  - Surgery [Unknown]
  - Condition aggravated [Unknown]
  - Chronic obstructive pulmonary disease [Unknown]
  - Abdominal adhesions [Unknown]

NARRATIVE: CASE EVENT DATE: 201701
